FAERS Safety Report 9745074 (Version 3)
Quarter: 2014Q4

REPORT INFORMATION
  Report Type: Report from Study
  Country: HU (occurrence: HU)
  Receive Date: 20131211
  Receipt Date: 20141210
  Transmission Date: 20150529
  Serious: Yes (Hospitalization)
  Sender: FDA-Public Use
  Company Number: HU-ROCHE-1315703

PATIENT
  Age: 63 Year
  Sex: Male
  Weight: 70 kg

DRUGS (14)
  1. ALGOPYRIN [Concomitant]
     Indication: CHILLS
     Route: 065
     Dates: start: 201311, end: 201311
  2. KALIUM-R [Concomitant]
     Indication: HYPOKALAEMIA
     Route: 065
     Dates: start: 20130919
  3. BETAXOLOL [Concomitant]
     Active Substance: BETAXOLOL
     Indication: HYPERTENSION
  4. PANTOPRAZOLE [Concomitant]
     Active Substance: PANTOPRAZOLE SODIUM
     Route: 065
     Dates: start: 20130926
  5. DOXORUBICIN [Suspect]
     Active Substance: DOXORUBICIN
     Indication: DIFFUSE LARGE B-CELL LYMPHOMA
     Dosage: DATE OF MOST RECENT DOSE OF  22/NOV/2013, DOSE CONCENTRATION: 100 MG
     Route: 042
     Dates: start: 20130919
  6. PACKED RED BLOOD CELL [Concomitant]
     Indication: ANAEMIA
     Route: 065
     Dates: start: 20131121, end: 20131121
  7. MILURIT [Concomitant]
     Active Substance: ALLOPURINOL
     Indication: PROPHYLAXIS
     Route: 065
     Dates: start: 20130919
  8. ATORVASTATIN [Concomitant]
     Active Substance: ATORVASTATIN
     Indication: HYPERCHOLESTEROLAEMIA
  9. CYCLOPHOSPHAMIDE. [Suspect]
     Active Substance: CYCLOPHOSPHAMIDE
     Indication: DIFFUSE LARGE B-CELL LYMPHOMA
     Dosage: DATE OF MOST RECENT DOSE OF 22/NOV/2013, DOSE CONCENTRATION: 1387 MG
     Route: 042
     Dates: start: 20130919
  10. SPIRONOLACTONE. [Concomitant]
     Active Substance: SPIRONOLACTONE
     Indication: HYPERTENSION
  11. VINCRISTINE [Suspect]
     Active Substance: VINCRISTINE
     Indication: DIFFUSE LARGE B-CELL LYMPHOMA
     Dosage: DATE OF MOST RECENT DOSE OF 22/NOV/2013, DOSE CONCENTRATION 2 MG
     Route: 040
     Dates: start: 20130919
  12. PREDNISONE. [Suspect]
     Active Substance: PREDNISONE
     Indication: DIFFUSE LARGE B-CELL LYMPHOMA
     Dosage: DATE OF MOST RECENT DOSE OF 26/NOV/2013, DOSE CONCENTRATION 100MG
     Route: 048
     Dates: start: 20130919
  13. OBINUTUZUMAB [Suspect]
     Active Substance: OBINUTUZUMAB
     Indication: DIFFUSE LARGE B-CELL LYMPHOMA
     Dosage: DATE OF MOST RECENT DOSE 22/NOV/2013: DOSE CONCENTRATION: 4 MG/ML, VOLUME UNIT 250 ML
     Route: 042
     Dates: start: 20130919
  14. PERINDOPRIL [Concomitant]
     Active Substance: PERINDOPRIL
     Indication: HYPERTENSION
     Route: 065
     Dates: end: 20131121

REACTIONS (1)
  - Neutropenia [Recovering/Resolving]

NARRATIVE: CASE EVENT DATE: 20131205
